FAERS Safety Report 6052050-X (Version None)
Quarter: 2009Q1

REPORT INFORMATION
  Report Type: 
  Country: None (occurrence: None)
  Receive Date: 20090121
  Receipt Date: 20080313
  Transmission Date: 20090719
  Serious: Yes (Other)
  Sender: FDA-Public Use
  Company Number: HQWYE211817JUL04

PATIENT
  Age: 56 Year
  Sex: Female
  Weight: 54.48 kg

DRUGS (3)
  1. PREMPRO [Suspect]
     Indication: HOT FLUSH
     Dosage: ^2.5MG^/ ORAL
     Route: 048
     Dates: start: 19960301, end: 19990801
  2. PREMPRO [Suspect]
     Indication: MENOPAUSE
     Dosage: ^2.5MG^/ ORAL
     Route: 048
     Dates: start: 19960301, end: 19990801
  3. ASPIRIN [Concomitant]

REACTIONS (1)
  - BREAST CANCER [None]
